FAERS Safety Report 9380408 (Version 2)
Quarter: 2013Q3

REPORT INFORMATION
  Report Type: Spontaneous
  Country: US (occurrence: None)
  Receive Date: 20130628
  Receipt Date: 20130821
  Transmission Date: 20140515
  Serious: Yes (Other)
  Sender: FDA-Public Use
  Company Number: AUR-APL-2013-04814

PATIENT
  Age: 90 Year
  Sex: Male

DRUGS (2)
  1. METFORMIN (METFORMIN) [Suspect]
     Indication: TYPE 2 DIABETES MELLITUS
     Dosage: 1500 MG (500 MG,3 IN 1 D)
  2. GLIPIZIDE (GLIPIZIDE) [Concomitant]

REACTIONS (10)
  - Hypotension [None]
  - Gastrointestinal haemorrhage [None]
  - Myelodysplastic syndrome [None]
  - Anaemia [None]
  - Decreased appetite [None]
  - Weight decreased [None]
  - Asthenia [None]
  - Speech disorder [None]
  - Abasia [None]
  - Oedema peripheral [None]
